FAERS Safety Report 17562101 (Version 3)
Quarter: 2024Q2

REPORT INFORMATION
  Report Type: Spontaneous
  Country: US (occurrence: None)
  Receive Date: 20200319
  Receipt Date: 20240523
  Transmission Date: 20240715
  Serious: Yes (Hospitalization, Other)
  Sender: FDA-Public Use
  Company Number: 2020SE39383

PATIENT
  Age: 789 Month
  Sex: Female
  Weight: 91.6 kg

DRUGS (11)
  1. BYDUREON BCISE [Suspect]
     Active Substance: EXENATIDE
     Indication: Type 2 diabetes mellitus
     Route: 058
  2. JARDIANCE [Concomitant]
     Active Substance: EMPAGLIFLOZIN
  3. LYRICA [Concomitant]
     Active Substance: PREGABALIN
  4. METOPROLOL SUCCINATE [Concomitant]
     Active Substance: METOPROLOL SUCCINATE
     Indication: Blood pressure abnormal
  5. BUSPAR [Concomitant]
     Active Substance: BUSPIRONE HYDROCHLORIDE
  6. ATORVASTATIN [Concomitant]
     Active Substance: ATORVASTATIN
     Dosage: 80 MG/DL DAILY
  7. TELMISARTAN [Concomitant]
     Active Substance: TELMISARTAN
  8. EZETIMIBE [Concomitant]
     Active Substance: EZETIMIBE
  9. PERCOCET [Concomitant]
     Active Substance: ACETAMINOPHEN\OXYCODONE HYDROCHLORIDE
  10. CILOSTAZOL [Concomitant]
     Active Substance: CILOSTAZOL
  11. NYSTATIN [Concomitant]
     Active Substance: NYSTATIN
     Indication: Rash

REACTIONS (5)
  - Myocardial infarction [Unknown]
  - Stent malfunction [Unknown]
  - Vein disorder [Unknown]
  - Incorrect dose administered by device [Unknown]
  - Device issue [Unknown]

NARRATIVE: CASE EVENT DATE: 20190101
